FAERS Safety Report 11358763 (Version 1)
Quarter: 2015Q3

REPORT INFORMATION
  Report Type: Spontaneous
  Country: US (occurrence: None)
  Receive Date: 20150716
  Receipt Date: 20150716
  Transmission Date: 20151125
  Serious: Yes (Hospitalization)
  Sender: FDA-Public Use
  Company Number: 2014PROUSA04172

PATIENT
  Age: 83 Year
  Sex: Male
  Weight: 82 kg

DRUGS (9)
  1. PROVENGE [Suspect]
     Active Substance: SIPULEUCEL-T
     Indication: PROSTATE CANCER METASTATIC
     Dosage: 250 ML, SINGLE, INTRAVENOUS?
     Route: 042
     Dates: start: 20141031, end: 20141031
  2. ATORVASTATIN (ATORVASTATIN CALCIUM) [Concomitant]
  3. JANUVIA [Concomitant]
     Active Substance: SITAGLIPTIN PHOSPHATE
  4. LEVEMIR [Concomitant]
     Active Substance: INSULIN DETEMIR
  5. FENOFIBRATE. [Concomitant]
     Active Substance: FENOFIBRATE
  6. CALCIUM + VIT D (CALCIUM, COLECALCIFEROL) [Concomitant]
  7. METOPROLOL (METOPROLOL TARTRATE) [Concomitant]
     Active Substance: METOPROLOL TARTRATE
  8. METFORMIN [Concomitant]
     Active Substance: METFORMIN HYDROCHLORIDE
  9. OMEPRAZOLE. [Concomitant]
     Active Substance: OMEPRAZOLE

REACTIONS (2)
  - Urinary tract infection [None]
  - Pyrexia [None]

NARRATIVE: CASE EVENT DATE: 20141120
